FAERS Safety Report 4956210-8 (Version None)
Quarter: 2006Q1

REPORT INFORMATION
  Report Type: 
  Country: None (occurrence: None)
  Receive Date: 20060329
  Receipt Date: 20060321
  Transmission Date: 20060701
  Serious: Yes (Hospitalization, Other)
  Sender: FDA-Public Use
  Company Number: PHNU2006DE01416

PATIENT
  Age: 92 Year
  Sex: Male

DRUGS (2)
  1. EMSELEX EXTENDED RELEASE [Suspect]
     Indication: URGE INCONTINENCE
     Dosage: 7.5 MG, QD
     Route: 048
     Dates: start: 20060314, end: 20060321
  2. DYTIDE [Concomitant]
     Dosage: 0.5 DF, QD

REACTIONS (4)
  - ANGINA PECTORIS [None]
  - ATRIAL FIBRILLATION [None]
  - HYPOTENSION [None]
  - TACHYCARDIA [None]
